FAERS Safety Report 12554826 (Version 1)
Quarter: 2016Q3

REPORT INFORMATION
  Report Type: Spontaneous
  Country: US (occurrence: US)
  Receive Date: 20160713
  Receipt Date: 20160713
  Transmission Date: 20161109
  Serious: Yes (Other)
  Sender: FDA-Public Use
  Company Number: US-ALKERMES INC.-ALK-2016-001801

PATIENT
  Age: 52 Year
  Sex: Male

DRUGS (1)
  1. VIVITROL [Suspect]
     Active Substance: NALTREXONE
     Indication: ALCOHOLISM
     Dosage: 380 MG, QMO
     Route: 030
     Dates: start: 20160208, end: 20160208

REACTIONS (5)
  - Injection site necrosis [Recovering/Resolving]
  - Injection site reaction [Recovering/Resolving]
  - Injection site induration [Recovering/Resolving]
  - Injection site oedema [Recovering/Resolving]
  - Injection site inflammation [Recovering/Resolving]

NARRATIVE: CASE EVENT DATE: 201602
